FAERS Safety Report 19859983 (Version 2)
Quarter: 2021Q3

REPORT INFORMATION
  Report Type: Spontaneous
  Country: US (occurrence: US)
  Receive Date: 20210920
  Receipt Date: 20210924
  Transmission Date: 20211014
  Serious: Yes (Other)
  Sender: FDA-Public Use
  Company Number: US-TEVA-2021-US-1954031

PATIENT
  Age: 56 Year
  Sex: Female

DRUGS (3)
  1. COPAXONE [Suspect]
     Active Substance: GLATIRAMER ACETATE
     Route: 065
     Dates: start: 20210909
  2. COPAXONE [Suspect]
     Active Substance: GLATIRAMER ACETATE
     Route: 065
  3. COPAXONE [Suspect]
     Active Substance: GLATIRAMER ACETATE
     Indication: MULTIPLE SCLEROSIS
     Route: 065
     Dates: start: 2004

REACTIONS (21)
  - Asthenia [Unknown]
  - Screaming [Unknown]
  - Hyperhidrosis [Unknown]
  - Insomnia [Unknown]
  - Body temperature increased [Recovering/Resolving]
  - Fatigue [Unknown]
  - Immediate post-injection reaction [Unknown]
  - Hot flush [Unknown]
  - Nasopharyngitis [Recovering/Resolving]
  - Fall [Unknown]
  - Pain [Unknown]
  - Blood pressure increased [Unknown]
  - Chills [Recovering/Resolving]
  - Tremor [Recovering/Resolving]
  - Product contamination [Recovering/Resolving]
  - Product quality issue [Unknown]
  - Hypotension [Unknown]
  - Hypoaesthesia [Recovering/Resolving]
  - Fluid retention [Recovering/Resolving]
  - Peripheral swelling [Recovering/Resolving]
  - Loss of consciousness [Recovering/Resolving]

NARRATIVE: CASE EVENT DATE: 202109
